FAERS Safety Report 15417150 (Version 1)
Quarter: 2018Q3

REPORT INFORMATION
  Report Type: Spontaneous
  Country: FR (occurrence: FR)
  Receive Date: 20180924
  Receipt Date: 20180924
  Transmission Date: 20181010
  Serious: Yes (Life-Threatening, Hospitalization, Other)
  Sender: FDA-Public Use
  Company Number: FR-TEVA-2018-FR-957105

PATIENT
  Age: 59 Year
  Sex: Female
  Weight: 90 kg

DRUGS (9)
  1. FESOTERODINE [Concomitant]
     Active Substance: FESOTERODINE
     Route: 065
  2. BROMAZEPAM [Concomitant]
     Active Substance: BROMAZEPAM
     Route: 065
  3. FLECAINIDE [Concomitant]
     Active Substance: FLECAINIDE
     Route: 065
  4. VENLAFAXINE [Concomitant]
     Active Substance: VENLAFAXINE HYDROCHLORIDE
     Route: 065
  5. FLUPENTIXOL [Concomitant]
     Active Substance: FLUPENTIXOL
     Route: 065
  6. NICARDIPINE [Concomitant]
     Active Substance: NICARDIPINE
     Route: 065
  7. METFORMIN [Concomitant]
     Active Substance: METFORMIN HYDROCHLORIDE
     Route: 065
  8. VALPROMIDE [Concomitant]
     Active Substance: VALPROMIDE
     Route: 065
  9. ACEBUTOLOL [Suspect]
     Active Substance: ACEBUTOLOL
     Route: 048

REACTIONS (11)
  - Cardiac arrest [Unknown]
  - Renal failure [Unknown]
  - Suicide attempt [Unknown]
  - Cardiogenic shock [Unknown]
  - Blood glucose decreased [Unknown]
  - Ventricular tachycardia [Unknown]
  - Haemolytic anaemia [Unknown]
  - Multiple organ dysfunction syndrome [Unknown]
  - Conduction disorder [Unknown]
  - Metabolic acidosis [Unknown]
  - Toxicity to various agents [Unknown]
